FAERS Safety Report 16276735 (Version 6)
Quarter: 2019Q2

REPORT INFORMATION
  Report Type: Spontaneous
  Country: DE (occurrence: DE)
  Receive Date: 20190506
  Receipt Date: 20190619
  Transmission Date: 20190711
  Serious: Yes (Hospitalization, Other)
  Sender: FDA-Public Use
  Company Number: DE-PFIZER INC-2019187450

PATIENT
  Age: 18 Year
  Sex: Female

DRUGS (5)
  1. DASATINIB. [Suspect]
     Active Substance: DASATINIB
     Indication: NEUROBLASTOMA
     Dosage: UNK UNK, CYCLIC
     Dates: start: 201101, end: 201104
  2. SIROLIMUS. [Suspect]
     Active Substance: SIROLIMUS
     Indication: NEUROBLASTOMA
     Dosage: UNK UNK, CYCLIC
     Dates: start: 201101, end: 201104
  3. IRINOTECAN HCL [Suspect]
     Active Substance: IRINOTECAN HYDROCHLORIDE
     Indication: NEUROBLASTOMA
     Dosage: UNK UNK, CYCLIC
     Dates: start: 201101, end: 201104
  4. TEMOZOLOMIDE. [Suspect]
     Active Substance: TEMOZOLOMIDE
     Indication: NEUROBLASTOMA
     Dosage: UNK UNK, CYCLIC
     Dates: start: 201101, end: 201104
  5. ZOLEDRONIC ACID [Concomitant]
     Active Substance: ZOLEDRONIC ACID
     Dosage: UNK, CYCLIC (EVERY FOUR WEEKS)
     Dates: start: 2011

REACTIONS (6)
  - Neutropenic infection [Unknown]
  - Decreased appetite [Unknown]
  - Nausea [Unknown]
  - Vomiting [Unknown]
  - Neutropenia [Unknown]
  - Mucosal disorder [Unknown]

NARRATIVE: CASE EVENT DATE: 2011
